FAERS Safety Report 19166584 (Version 2)
Quarter: 2021Q2

REPORT INFORMATION
  Report Type: Spontaneous
  Country: US (occurrence: US)
  Receive Date: 20210421
  Receipt Date: 20210429
  Transmission Date: 20210717
  Serious: Yes (Other)
  Sender: FDA-Public Use
  Company Number: US-GILEAD-2020-0497681

PATIENT
  Age: 62 Year
  Sex: Male
  Weight: 195.7 kg

DRUGS (15)
  1. REMDESIVIR. [Suspect]
     Active Substance: REMDESIVIR
     Dosage: 100 MG, QD AT 10:16
     Route: 042
     Dates: start: 20201002, end: 20201002
  2. DEXAMETHASONE. [Concomitant]
     Active Substance: DEXAMETHASONE
     Dosage: 6 MG, QD, AT 8:27
     Dates: start: 20201001, end: 20201001
  3. CISATRACURIUM. [Concomitant]
     Active Substance: CISATRACURIUM
     Dosage: 100 MG/100 ML
     Dates: start: 20201001
  4. PANTOPRAZOLE [Concomitant]
     Active Substance: PANTOPRAZOLE
     Dosage: 40 MG, QD
     Route: 042
  5. REMDESIVIR. [Suspect]
     Active Substance: REMDESIVIR
     Dosage: 100 MG, QD AT 08:26
     Route: 042
     Dates: start: 20201001, end: 20201001
  6. FENTANYL. [Concomitant]
     Active Substance: FENTANYL
     Dosage: 1000 MCG/100 ML
     Dates: start: 20201002
  7. HEPARIN [Concomitant]
     Active Substance: HEPARIN SODIUM
     Dosage: 25000/250 ML
     Dates: start: 20200930
  8. REMDESIVIR. [Suspect]
     Active Substance: REMDESIVIR
     Dosage: 100 MG, QD AT 10:47
     Route: 042
     Dates: start: 20201003, end: 20201003
  9. REMDESIVIR. [Suspect]
     Active Substance: REMDESIVIR
     Indication: COVID-19
     Dosage: 200 MG, QD, AT 1:40
     Route: 042
     Dates: start: 20200930, end: 20200930
  10. DEXAMETHASONE. [Concomitant]
     Active Substance: DEXAMETHASONE
     Dosage: 6 MG, QD, AT  09:38
     Dates: start: 20201003, end: 20201003
  11. LEVOFLOXACIN. [Concomitant]
     Active Substance: LEVOFLOXACIN
     Dosage: 750 MG/150 ML
     Dates: start: 20200930
  12. DEXAMETHASONE. [Concomitant]
     Active Substance: DEXAMETHASONE
     Dosage: 6 MG, QD
     Dates: start: 20200930, end: 20200930
  13. INSULIN REGULAR [INSULIN BOVINE] [Concomitant]
     Active Substance: INSULIN BEEF
     Dosage: 100 UL/100ML
     Dates: start: 20201001
  14. DEXAMETHASONE. [Concomitant]
     Active Substance: DEXAMETHASONE
     Dosage: 6 MG, QD, 10:21
     Dates: start: 20201002, end: 20201002
  15. MIDAZOLAM. [Concomitant]
     Active Substance: MIDAZOLAM
     Dosage: 50 MG/ 50 ML
     Dates: start: 20201001

REACTIONS (1)
  - Bradycardia [Unknown]

NARRATIVE: CASE EVENT DATE: 20200930
